FAERS Safety Report 7121705-8 (Version None)
Quarter: 2010Q4

REPORT INFORMATION
  Report Type: 
  Country: None (occurrence: None)
  Receive Date: 20101122
  Receipt Date: 20101122
  Transmission Date: 20110411
  Serious: Yes (Other)
  Sender: FDA-Public Use
  Company Number: None

PATIENT
  Sex: Female
  Weight: 76.2043 kg

DRUGS (1)
  1. VALACYCLOVIR HYDROCHLORIDE [Suspect]
     Indication: ORAL HERPES
     Dosage: 2 TABS TWICE FOR 1 DAYS PO
     Route: 048
     Dates: start: 20101119, end: 20101119

REACTIONS (3)
  - DISORIENTATION [None]
  - PRODUCT SUBSTITUTION ISSUE [None]
  - VOMITING [None]
